FAERS Safety Report 8493405-3 (Version None)
Quarter: 2012Q3

REPORT INFORMATION
  Report Type: 
  Country: None (occurrence: None)
  Receive Date: 20120706
  Receipt Date: 20120628
  Transmission Date: 20120928
  Serious: Yes (Other)
  Sender: FDA-Public Use
  Company Number: US-CELGENEUS-163-20785-12064000

PATIENT
  Sex: Female

DRUGS (19)
  1. ASPIRIN [Concomitant]
     Route: 065
  2. BROMFENAC SOL [Concomitant]
     Route: 065
  3. FOLIC ACID [Concomitant]
     Route: 065
  4. FERROUS SULFATE TAB [Concomitant]
     Route: 065
  5. LATANOPROST SOL [Concomitant]
     Route: 065
  6. VIGAMOX [Concomitant]
     Route: 065
  7. THALOMID [Suspect]
     Indication: MULTIPLE MYELOMA
     Dosage: 50 MILLIGRAM
     Route: 048
     Dates: start: 20100101
  8. THALOMID [Suspect]
     Dosage: 100 MILLIGRAM
     Route: 048
     Dates: start: 20100501
  9. MULTI-VITAMIN [Concomitant]
     Route: 065
  10. LACTULOSE [Concomitant]
     Route: 065
  11. ARANESP [Concomitant]
     Route: 065
  12. ATENOLOL [Concomitant]
     Route: 065
  13. CALCIUM +D [Concomitant]
     Route: 065
  14. COLACE [Concomitant]
     Route: 065
  15. RAMIPRIL [Concomitant]
     Route: 065
  16. VITAMIN D [Concomitant]
     Route: 065
  17. THALOMID [Suspect]
     Dosage: 150 MILLIGRAM
     Route: 048
     Dates: start: 20110901
  18. PRAVASTATIN [Concomitant]
     Route: 065
  19. PREDNISOL SOL [Concomitant]
     Route: 065

REACTIONS (1)
  - CATARACT [None]
